FAERS Safety Report 12269719 (Version 1)
Quarter: 2016Q2

REPORT INFORMATION
  Report Type: Spontaneous
  Country: FR (occurrence: FR)
  Receive Date: 20160414
  Receipt Date: 20160414
  Transmission Date: 20160815
  Serious: Yes (Other)
  Sender: FDA-Public Use
  Company Number: FR-UCBSA-2016012841

PATIENT
  Age: 0 Year
  Sex: Male
  Weight: 2.6 kg

DRUGS (3)
  1. TEGRETOL [Concomitant]
     Active Substance: CARBAMAZEPINE
     Indication: EPILEPSY
     Dosage: 300 MG DAILY DOSE
     Route: 064
     Dates: end: 20160205
  2. VIMPAT [Suspect]
     Active Substance: LACOSAMIDE
     Indication: EPILEPSY
     Dosage: 100MG IN THE MORNING, 50 MG AT NOON AND 100 MG IN THE EVENING, DAILY DOSE: 250 MG
     Route: 064
     Dates: start: 20150515, end: 20160205
  3. URBANYL [Concomitant]
     Active Substance: CLOBAZAM
     Indication: EPILEPSY
     Dosage: 40 MG DAILY DOSE
     Route: 064
     Dates: end: 20160205

REACTIONS (2)
  - Foetal exposure during pregnancy [Unknown]
  - Growth retardation [Recovered/Resolved]

NARRATIVE: CASE EVENT DATE: 20150515
